APPROVED DRUG PRODUCT: YAELA
Active Ingredient: DROSPIRENONE; ETHINYL ESTRADIOL
Strength: 3MG;0.03MG
Dosage Form/Route: TABLET;ORAL-28
Application: A202015 | Product #001 | TE Code: AB
Applicant: NOVAST LABORATORIES LTD
Approved: Nov 19, 2014 | RLD: No | RS: No | Type: RX